FAERS Safety Report 23815037 (Version 1)
Quarter: 2024Q2

REPORT INFORMATION
  Report Type: Spontaneous
  Country: US (occurrence: None)
  Receive Date: 20240502
  Receipt Date: 20240502
  Transmission Date: 20240716
  Serious: Yes (Other)
  Sender: FDA-Public Use
  Company Number: None

PATIENT
  Age: 71 Year
  Sex: Female

DRUGS (1)
  1. AMJEVITA [Suspect]
     Active Substance: ADALIMUMAB-ATTO
     Indication: Pyoderma gangrenosum
     Dosage: 0.8 ML EVERY OTHER WEEK SUBCUTANEOUS ?
     Route: 058
     Dates: start: 20240226, end: 20240501

REACTIONS (2)
  - Injection site cellulitis [None]
  - Skin graft [None]

NARRATIVE: CASE EVENT DATE: 20240330
